FAERS Safety Report 6567180-3 (Version None)
Quarter: 2010Q1

REPORT INFORMATION
  Report Type: 
  Country: None (occurrence: None)
  Receive Date: 20100202
  Receipt Date: 20100125
  Transmission Date: 20100710
  Serious: Yes (Other)
  Sender: FDA-Public Use
  Company Number: CHPA2010DK01918

PATIENT
  Sex: Female

DRUGS (4)
  1. NICOTINELL TTS (NCH) [Suspect]
     Indication: SMOKING CESSATION THERAPY
     Dosage: 21 MG, QD
     Route: 062
  2. PAMOL [Concomitant]
  3. DOLOL [Concomitant]
  4. CODEINE [Concomitant]

REACTIONS (5)
  - ABDOMINAL PAIN [None]
  - CYSTITIS [None]
  - MALAISE [None]
  - MICTURITION URGENCY [None]
  - PAIN [None]
